FAERS Safety Report 17187386 (Version 1)
Quarter: 2019Q4

REPORT INFORMATION
  Report Type: Spontaneous
  Country: US (occurrence: US)
  Receive Date: 20191220
  Receipt Date: 20191220
  Transmission Date: 20200122
  Serious: No
  Sender: FDA-Public Use
  Company Number: NVSC2019US022843

PATIENT
  Age: 27 Year
  Sex: Male

DRUGS (5)
  1. MONTELUKAST [Suspect]
     Active Substance: MONTELUKAST SODIUM
     Indication: URTICARIA CHOLINERGIC
     Dosage: UNK UKN, UNKNOWN
     Route: 065
  2. XOLAIR [Suspect]
     Active Substance: OMALIZUMAB
     Indication: URTICARIA CHOLINERGIC
     Dosage: 300 MG (EVERY 4 WEEKS)
     Route: 065
  3. CYPROHEPTADINE. [Suspect]
     Active Substance: CYPROHEPTADINE
     Indication: URTICARIA CHOLINERGIC
     Dosage: UNK UKN, UNKNOWN
     Route: 065
  4. CIMETIDINE [Suspect]
     Active Substance: CIMETIDINE
     Indication: PRODUCT USED FOR UNKNOWN INDICATION
     Dosage: UNK UKN, UNKNOWN
     Route: 065
  5. DOXEPIN [Suspect]
     Active Substance: DOXEPIN
     Indication: PRODUCT USED FOR UNKNOWN INDICATION
     Dosage: UNK UKN, UNKNOWN
     Route: 065

REACTIONS (3)
  - Urticaria cholinergic [Unknown]
  - Drug ineffective [Unknown]
  - Therapeutic response decreased [Unknown]
